FAERS Safety Report 16180290 (Version 1)
Quarter: 2019Q2

REPORT INFORMATION
  Report Type: Spontaneous
  Country: FR (occurrence: FR)
  Receive Date: 20190410
  Receipt Date: 20190410
  Transmission Date: 20190711
  Serious: Yes (Hospitalization, Other)
  Sender: FDA-Public Use
  Company Number: FR-BAUSCH-BL-2019-010573

PATIENT
  Age: 88 Year
  Sex: Female

DRUGS (5)
  1. GLIMEPERIDE [Suspect]
     Active Substance: GLIMEPIRIDE
     Indication: PRODUCT USED FOR UNKNOWN INDICATION
     Route: 048
  2. PRAVASTATIN. [Suspect]
     Active Substance: PRAVASTATIN
     Indication: PRODUCT USED FOR UNKNOWN INDICATION
     Route: 048
  3. HYDROXYZINE [Suspect]
     Active Substance: HYDROXYZINE HYDROCHLORIDE
     Indication: PRODUCT USED FOR UNKNOWN INDICATION
     Route: 048
  4. DIFFU K [Suspect]
     Active Substance: POTASSIUM CHLORIDE
     Indication: PRODUCT USED FOR UNKNOWN INDICATION
     Route: 048
  5. MONAZOL [Suspect]
     Active Substance: SERTACONAZOLE NITRATE
     Indication: PRODUCT USED FOR UNKNOWN INDICATION
     Route: 003

REACTIONS (1)
  - Eczema [Recovered/Resolved]

NARRATIVE: CASE EVENT DATE: 20150922
